FAERS Safety Report 5309676-8 (Version None)
Quarter: 2007Q2

REPORT INFORMATION
  Report Type: 
  Country: None (occurrence: None)
  Receive Date: 20070427
  Receipt Date: 20061106
  Transmission Date: 20071010
  Serious: No
  Sender: FDA-Public Use
  Company Number: US-GLAXOSMITHKLINE-A0626346A

PATIENT
  Sex: Female

DRUGS (3)
  1. DEXEDRINE [Suspect]
     Route: 048
  2. DEXTROAMPHETAMINE SULFATE [Suspect]
     Route: 048
  3. ADDERALL 10 [Concomitant]

REACTIONS (1)
  - DRUG INEFFECTIVE [None]
